FAERS Safety Report 6003672-3 (Version None)
Quarter: 2008Q4

REPORT INFORMATION
  Report Type: 
  Country: None (occurrence: None)
  Receive Date: 20081216
  Receipt Date: 20080801
  Transmission Date: 20090506
  Serious: No
  Sender: FDA-Public Use
  Company Number: US-AMGEN-KDL298871

PATIENT
  Sex: Female

DRUGS (17)
  1. ARANESP [Suspect]
     Indication: RENAL FAILURE CHRONIC
     Dates: start: 20080301
  2. LANTUS [Concomitant]
  3. NOVOLOG [Concomitant]
  4. NORVASC [Concomitant]
  5. DIOVAN [Concomitant]
  6. LASIX [Concomitant]
  7. TRICOR [Concomitant]
  8. LOVAZA [Concomitant]
  9. HYDROCORTISONE [Concomitant]
  10. UNSPECIFIED ANTIHYPERTENSIVE AGENT [Concomitant]
  11. POTASSIUM CHLORIDE [Concomitant]
  12. VITAMIN D [Concomitant]
  13. ACIPHEX [Concomitant]
  14. GUAIFENESIN [Concomitant]
  15. CLARITIN [Concomitant]
  16. ASPIRIN [Concomitant]
  17. CYMBALTA [Concomitant]

REACTIONS (1)
  - MUSCLE SPASMS [None]
